FAERS Safety Report 13144138 (Version 4)
Quarter: 2017Q2

REPORT INFORMATION
  Report Type: Report from Study
  Country: NO (occurrence: NO)
  Receive Date: 20170124
  Receipt Date: 20170405
  Transmission Date: 20170830
  Serious: Yes (Hospitalization)
  Sender: FDA-Public Use
  Company Number: NO-ROCHE-1882354

PATIENT
  Age: 55 Year
  Sex: Female
  Weight: 61 kg

DRUGS (5)
  1. PARACETAMOL [Concomitant]
     Active Substance: ACETAMINOPHEN
     Indication: MYALGIA
     Route: 048
     Dates: start: 20160301
  2. IMOVANE [Concomitant]
     Active Substance: ZOPICLONE
     Route: 048
     Dates: start: 20160301
  3. FOSAMAX [Concomitant]
     Active Substance: ALENDRONATE SODIUM
     Route: 048
     Dates: start: 20140701
  4. CALCIGRAN FORTE [Concomitant]
     Route: 048
     Dates: start: 20140701
  5. ATEZOLIZUMAB [Suspect]
     Active Substance: ATEZOLIZUMAB
     Indication: NEOPLASM
     Dosage: MOST RECENT DOSE PRIOR TO AE ONSET: 02/JAN/2017
     Route: 042
     Dates: start: 20170102

REACTIONS (1)
  - General physical health deterioration [Recovered/Resolved]

NARRATIVE: CASE EVENT DATE: 20170114
